FAERS Safety Report 17104027 (Version 1)
Quarter: 2019Q4

REPORT INFORMATION
  Report Type: Spontaneous
  Country: US (occurrence: US)
  Receive Date: 20191107
  Receipt Date: 20191107
  Transmission Date: 20200122
  Serious: Yes (Hospitalization)
  Sender: FDA-Public Use
  Company Number: None

PATIENT
  Age: 77 Year
  Sex: Female
  Weight: 52.62 kg

DRUGS (14)
  1. SERZONE [Concomitant]
     Active Substance: NEFAZODONE HYDROCHLORIDE
  2. TYLENOL [Concomitant]
     Active Substance: ACETAMINOPHEN
  3. CALCIUM CITRATE [Concomitant]
     Active Substance: CALCIUM CITRATE
  4. VITAMIN DAY [Concomitant]
  5. AMITIZA [Suspect]
     Active Substance: LUBIPROSTONE
     Indication: GASTROINTESTINAL MOTILITY DISORDER
     Dosage: ?          QUANTITY:1 DF DOSAGE FORM;?
     Route: 048
     Dates: start: 20191018, end: 20191018
  6. FLUTICASONE PROPIONATE. [Concomitant]
     Active Substance: FLUTICASONE PROPIONATE
  7. ACIDOPHILUS PROBITIOTIC [Concomitant]
  8. KLONOPIN [Concomitant]
     Active Substance: CLONAZEPAM
  9. GABAPENTIN. [Concomitant]
     Active Substance: GABAPENTIN
  10. SYNTHROID [Concomitant]
     Active Substance: LEVOTHYROXINE SODIUM
  11. CRANBERRY. [Concomitant]
     Active Substance: CRANBERRY
  12. IMIPRAMINE [Concomitant]
     Active Substance: IMIPRAMINE
  13. FOSAMAX [Concomitant]
     Active Substance: ALENDRONATE SODIUM
  14. OMPERAZOLE [Concomitant]
     Active Substance: OMEPRAZOLE

REACTIONS (3)
  - Loss of consciousness [None]
  - Headache [None]
  - Dizziness [None]

NARRATIVE: CASE EVENT DATE: 20191019
